FAERS Safety Report 15601985 (Version 1)
Quarter: 2018Q4

REPORT INFORMATION
  Report Type: Spontaneous
  Country: US (occurrence: US)
  Receive Date: 20181109
  Receipt Date: 20181109
  Transmission Date: 20190205
  Serious: No
  Sender: FDA-Public Use
  Company Number: US-TEVA-2018-US-972303

PATIENT
  Sex: Male

DRUGS (2)
  1. LIDOCAINE TEVA [Suspect]
     Active Substance: LIDOCAINE
     Indication: BACK PAIN
  2. LIDOCAINE TEVA [Suspect]
     Active Substance: LIDOCAINE
     Indication: MUSCULOSKELETAL PAIN
     Route: 065

REACTIONS (2)
  - Feeling cold [Unknown]
  - Product use in unapproved indication [Unknown]
